FAERS Safety Report 8363071-6 (Version None)
Quarter: 2012Q2

REPORT INFORMATION
  Report Type: 
  Country: None (occurrence: None)
  Receive Date: 20120516
  Receipt Date: 20120508
  Transmission Date: 20120825
  Serious: Yes (Hospitalization)
  Sender: FDA-Public Use
  Company Number: JP-ASTELLAS-2012JP004117

PATIENT
  Age: 18 Year
  Sex: Male
  Weight: 57.4 kg

DRUGS (15)
  1. TACROLIMUS [Suspect]
     Indication: COLITIS ULCERATIVE
     Dosage: 1 MG, BID
     Route: 048
     Dates: start: 20110804, end: 20111017
  2. TACROLIMUS [Suspect]
     Dosage: 2 MG, BID
     Route: 048
     Dates: start: 20110629, end: 20110701
  3. GASMOTIN [Concomitant]
     Dosage: UNK
     Route: 048
     Dates: end: 20110831
  4. ENALAPRIL MALEATE [Concomitant]
     Dosage: UNK
     Route: 048
     Dates: start: 20110620
  5. TACROLIMUS [Suspect]
     Dosage: 2 MG, BID
     Route: 048
     Dates: start: 20110608, end: 20110610
  6. TACROLIMUS [Suspect]
     Dosage: 2.5 MG, BID
     Route: 048
     Dates: start: 20110611, end: 20110614
  7. TACROLIMUS [Suspect]
     Dosage: 2 MG, BID
     Route: 048
     Dates: start: 20110615, end: 20110622
  8. CARVEDILOL [Concomitant]
     Dosage: UNK
     Route: 048
     Dates: start: 20110723
  9. TACROLIMUS [Suspect]
     Dosage: 2.5 MG, BID
     Route: 048
     Dates: start: 20110623, end: 20110628
  10. DAIKENTYUTO [Concomitant]
     Dosage: UNK
     Route: 048
     Dates: end: 20110706
  11. TACROLIMUS [Suspect]
     Dosage: 1.5 MG, BID
     Route: 048
     Dates: start: 20110606, end: 20110607
  12. ZOLPIDEM [Concomitant]
     Dosage: UNK
     Route: 048
     Dates: end: 20110924
  13. GABAPENTIN [Concomitant]
     Dosage: UNK
     Route: 048
     Dates: end: 20110924
  14. ROZEREM [Concomitant]
     Dosage: UNK
     Route: 048
     Dates: end: 20110924
  15. TACROLIMUS [Suspect]
     Dosage: 1.5 MG, BID
     Route: 048
     Dates: start: 20110702, end: 20110803

REACTIONS (2)
  - INTESTINAL OBSTRUCTION [None]
  - INTESTINAL PERFORATION [None]
